FAERS Safety Report 8189128-0 (Version None)
Quarter: 2012Q1

REPORT INFORMATION
  Report Type: 
  Country: None (occurrence: None)
  Receive Date: 20120307
  Receipt Date: 20120228
  Transmission Date: 20120608
  Serious: Yes (Other)
  Sender: FDA-Public Use
  Company Number: US-AMGEN-USASP2012013079

PATIENT
  Age: 63 Year
  Sex: Male

DRUGS (2)
  1. METHOTREXATE [Concomitant]
     Dosage: UNK
     Dates: start: 20040101
  2. ENBREL [Suspect]
     Indication: PSORIATIC ARTHROPATHY
     Dosage: 25 MG, ONCE IN EVERY THREE DAYS
     Dates: start: 20050601

REACTIONS (7)
  - PROCTALGIA [None]
  - BRONCHITIS [None]
  - ILIAC ARTERY THROMBOSIS [None]
  - OESOPHAGEAL DILATATION [None]
  - DIARRHOEA [None]
  - CLOSTRIDIUM TEST POSITIVE [None]
  - STOMACH DILATION PROCEDURE [None]
